FAERS Safety Report 23311163 (Version 1)
Quarter: 2023Q4

REPORT INFORMATION
  Report Type: Report from Study
  Country: CA (occurrence: CA)
  Receive Date: 20231218
  Receipt Date: 20231218
  Transmission Date: 20240110
  Serious: Yes (Other)
  Sender: FDA-Public Use
  Company Number: CA-TAKEDA-2023TUS121499

PATIENT
  Sex: Female

DRUGS (5)
  1. VEDOLIZUMAB [Suspect]
     Active Substance: VEDOLIZUMAB
     Indication: Colitis ulcerative
     Dosage: 300 MILLIGRAM
     Route: 042
     Dates: start: 20231102
  2. PREDNISONE [Concomitant]
     Active Substance: PREDNISONE
     Dosage: UNK
     Dates: start: 20231030
  3. Salofalk [Concomitant]
     Dosage: 8 MILLIGRAM, QD`
  4. Salofalk [Concomitant]
     Dosage: UNK
     Route: 054
     Dates: start: 19910101
  5. ENTOCORT [Concomitant]
     Active Substance: BUDESONIDE
     Dosage: 0.02 MILLIGRAM
     Route: 054
     Dates: start: 20230501

REACTIONS (1)
  - Colitis ulcerative [Not Recovered/Not Resolved]
